FAERS Safety Report 10139007 (Version 1)
Quarter: 2014Q2

REPORT INFORMATION
  Report Type: Spontaneous
  Country: US (occurrence: US)
  Receive Date: 20140429
  Receipt Date: 20140429
  Transmission Date: 20141212
  Serious: No
  Sender: FDA-Public Use
  Company Number: US-PFIZER INC-2014114407

PATIENT
  Age: 72 Year
  Sex: Male
  Weight: 106.58 kg

DRUGS (2)
  1. CAVERJECT [Suspect]
     Indication: ERECTILE DYSFUNCTION
     Dosage: 10 UG, AS NEEDED
     Dates: start: 2008
  2. LEVOTHYROXINE [Concomitant]
     Indication: THYROID DISORDER
     Dosage: 200 UG, DAILY

REACTIONS (1)
  - Drug effect decreased [Unknown]
